FAERS Safety Report 7817569-7 (Version None)
Quarter: 2011Q4

REPORT INFORMATION
  Report Type: 
  Country: None (occurrence: None)
  Receive Date: 20111017
  Receipt Date: 20111004
  Transmission Date: 20120403
  Serious: Yes (Other)
  Sender: FDA-Public Use
  Company Number: PHHY2011CA72324

PATIENT
  Sex: Male

DRUGS (84)
  1. CLOZARIL [Suspect]
     Dosage: 12.5 MG, UNK
     Dates: start: 20110506
  2. CLOZARIL [Suspect]
     Dosage: 50 MG, UNK
     Route: 048
     Dates: start: 20110709
  3. COGENTIN [Concomitant]
     Dosage: 2 MG, UNK
     Route: 048
     Dates: start: 20110110
  4. ZYPREXA [Concomitant]
     Dosage: 10 MG, BID
     Route: 048
     Dates: start: 20101223
  5. ZYPREXA [Concomitant]
     Dosage: 5 MG, UNK
     Route: 048
     Dates: start: 20101221
  6. SLOW-K [Concomitant]
     Dosage: 8 MEQ, BID
     Route: 048
     Dates: start: 20110727
  7. BENEFIBER [Concomitant]
     Dosage: 2 TSP, UNK
     Dates: start: 20101202
  8. UREMOL [Concomitant]
     Dates: start: 20101214
  9. UREMOL [Concomitant]
     Dates: start: 20110727
  10. PANTOLOC ^BYK GULDEN^ [Concomitant]
     Dosage: 40 MG, UNK
     Route: 048
     Dates: start: 20110610
  11. CLONAZEPAM [Concomitant]
     Dosage: 1 MG, BID
     Route: 048
     Dates: start: 20110727
  12. ATIVAN [Concomitant]
     Dosage: 2 MG, STAT
     Route: 030
     Dates: start: 20110816
  13. DEPAKENE [Concomitant]
     Dosage: 500 MG, TID
     Dates: start: 20101229
  14. DESYREL [Concomitant]
     Dosage: 50 MG, UNK
     Dates: start: 20110428
  15. CLOZARIL [Suspect]
     Indication: PSYCHOTIC DISORDER
     Dosage: 50 MG OF AM PLUS 150 MG QHS
     Dates: start: 20110506
  16. CLOZARIL [Suspect]
     Dosage: 25 MG, UNK
     Route: 048
     Dates: start: 20110516
  17. CLOZARIL [Suspect]
     Dosage: 50 MG, UNK
     Route: 048
     Dates: start: 20110728
  18. ZYPREXA [Concomitant]
     Indication: AGITATION
     Dosage: 5 MG, STAT
     Dates: start: 20101220
  19. CLONAZEPAM [Concomitant]
     Dosage: 1 MG, TID
     Route: 048
     Dates: start: 20110509
  20. ATIVAN [Concomitant]
     Dosage: 2 MG, STAT
     Route: 030
     Dates: start: 20110815
  21. ATIVAN [Concomitant]
     Dosage: 2 MG, STAT
     Dates: start: 20110904
  22. LOXAPINE HCL [Concomitant]
     Dosage: 25 MG, TID
     Dates: start: 20110912
  23. DEPAKENE [Concomitant]
     Dosage: 500 MG, BID
     Route: 048
     Dates: start: 20110727
  24. DESYREL [Concomitant]
     Dosage: 100 MG, UNK
     Route: 048
     Dates: start: 20110316
  25. DESYREL [Concomitant]
     Dosage: 50 MG, UNK
     Route: 048
     Dates: start: 20110827
  26. COVERSYL                                /BEL/ [Concomitant]
     Dosage: 4 MG, UNK
     Route: 048
  27. CLOZARIL [Suspect]
     Dosage: 25 MG, UNK
     Route: 048
     Dates: start: 20110511
  28. CLOZARIL [Suspect]
     Dosage: 100 MG, UNK
     Route: 048
     Dates: start: 20110809
  29. COGENTIN [Concomitant]
     Indication: DYSTONIA
     Dosage: 1 MG, UNK
     Route: 048
  30. ZYPREXA [Concomitant]
     Dosage: 5 MG, UNK
     Route: 048
     Dates: start: 20110727
  31. SLOW-K [Concomitant]
     Dosage: 16 MEQ, BID
     Route: 048
     Dates: start: 20110617
  32. CYANOCOBALAMIN [Concomitant]
     Dosage: 1000 MG, UNK
     Route: 030
     Dates: start: 20110819
  33. BENEFIBER [Concomitant]
     Dosage: 2 TSP, UNK
     Dates: start: 20110728
  34. PANTOLOC ^BYK GULDEN^ [Concomitant]
     Dosage: 40 MG, UNK
     Route: 048
     Dates: start: 20110728
  35. CLONAZEPAM [Concomitant]
     Dosage: 1 MG, BID
     Dates: start: 20110516
  36. LOXAPINE HCL [Concomitant]
     Dosage: 25 MG, UNK
     Route: 048
     Dates: start: 20110303
  37. DESYREL [Concomitant]
     Dosage: 100 MG, UNK
     Route: 048
     Dates: start: 20110727
  38. CLOZARIL [Suspect]
     Dosage: 50 MG, UNK
     Route: 048
     Dates: start: 20110727
  39. CLOZARIL [Suspect]
     Dates: end: 20110826
  40. TUBERSOL [Concomitant]
     Dosage: 5 U, UNK
     Dates: start: 20110622
  41. ZITHROMAX [Concomitant]
     Dosage: 250 MG, UNK
     Dates: start: 20110514
  42. ATIVAN [Concomitant]
     Dosage: 1 MG, UNK
     Route: 048
     Dates: start: 20110811
  43. ATIVAN [Concomitant]
     Dosage: 2 MG, STAT
     Dates: start: 20110829
  44. DESYREL [Concomitant]
     Indication: AGITATION
     Dosage: 25 MG, UNK
     Route: 048
     Dates: start: 20110315
  45. LACTULOSE [Concomitant]
     Dosage: 30 ML, UNK
     Route: 048
     Dates: start: 20110727
  46. TYLENOL-500 [Concomitant]
     Indication: PAIN
     Dosage: 650 MG, UNK
     Route: 048
  47. CLOZARIL [Suspect]
     Dosage: 25 MG, UNK
     Route: 048
     Dates: start: 20110509
  48. ZYPREXA [Concomitant]
     Dosage: 5 MG, STAT
     Route: 048
     Dates: start: 20110705
  49. PALAFER [Concomitant]
     Dosage: 300 MG, UNK
     Dates: start: 20110929
  50. LOXAPINE HCL [Concomitant]
     Dosage: 25 MG, UNK
     Route: 048
     Dates: start: 20110107
  51. LOXAPINE HCL [Concomitant]
     Dosage: 10 MG, UNK
     Route: 048
     Dates: start: 20110705
  52. LOXAPINE HCL [Concomitant]
     Dosage: 25 MG, UNK
     Route: 048
     Dates: start: 20110906
  53. DEPAKENE [Concomitant]
     Dosage: 500 MG, BID
     Route: 048
     Dates: start: 20101223
  54. LACTULOSE [Concomitant]
     Indication: CONSTIPATION
     Dosage: 30 ML, UNK
     Route: 048
     Dates: start: 20101224
  55. COGENTIN [Concomitant]
     Dosage: 2 MG, STAT
     Route: 030
     Dates: start: 20101203
  56. CYANOCOBALAMIN [Concomitant]
     Dosage: 1000 UG, UNK
     Dates: start: 20101221
  57. ZITHROMAX [Concomitant]
     Dates: start: 20110517
  58. ATIVAN [Concomitant]
     Dosage: 1 MG, UNK
     Dates: start: 20110222
  59. LOXAPINE HCL [Concomitant]
     Dosage: 25 MG, UNK
     Route: 030
     Dates: start: 20110912
  60. DEPAKENE [Concomitant]
     Dosage: 500 MG, BID
     Route: 048
     Dates: start: 20110617
  61. DESYREL [Concomitant]
     Dosage: 50 MG, UNK
     Route: 048
     Dates: start: 20110828
  62. CLOZARIL [Suspect]
     Dosage: 50 MG, UNK
     Route: 048
     Dates: start: 20110513
  63. AVELOX [Concomitant]
     Dosage: 400 MG, UNK
     Route: 048
     Dates: start: 20110516
  64. SYNTHROID [Concomitant]
     Dosage: 200 UG, UNK
     Route: 048
     Dates: start: 20110728
  65. PANTOLOC ^BYK GULDEN^ [Concomitant]
     Dosage: 40 MG, UNK
     Dates: start: 20110609
  66. ATIVAN [Concomitant]
     Dosage: 1 MG, UNK
     Dates: start: 20101218
  67. ATIVAN [Concomitant]
     Dosage: 1 MG, UNK
     Dates: start: 20101231
  68. ATIVAN [Concomitant]
     Dosage: 2 MG, STAT
     Dates: start: 20100820
  69. LOXAPINE HCL [Concomitant]
     Indication: AGITATION
     Dosage: 25 MG, STAT
     Dates: start: 20110920
  70. TYLENOL-500 [Concomitant]
     Indication: PYREXIA
     Dosage: 30 ML, UNK
     Route: 048
     Dates: start: 20110727
  71. CLOZARIL [Suspect]
     Dosage: 50 MG, UNK
     Dates: start: 20110512
  72. ZYPREXA [Concomitant]
     Dosage: 5 MG, UNK
     Dates: start: 20110706
  73. ZYPREXA [Concomitant]
     Dosage: 5 MG, UNK
     Route: 048
     Dates: start: 20110824
  74. ZYPREXA [Concomitant]
     Dosage: 10 MG, UNK
     Route: 030
     Dates: start: 20101221
  75. K+10 [Concomitant]
     Dosage: 6 ML, UNK
     Route: 048
     Dates: start: 20110827
  76. TUBERSOL [Concomitant]
     Dosage: 5 U, UNK
     Dates: start: 20110529
  77. ATIVAN [Concomitant]
     Indication: AGITATION
     Dosage: 0.5 MG, UNK
     Route: 048
     Dates: start: 20101205
  78. COLACE [Concomitant]
     Dosage: 100 MG, UNK
     Route: 048
     Dates: start: 20101201
  79. COLACE [Concomitant]
     Dosage: 100 MG, UNK
     Route: 048
     Dates: start: 20110727
  80. LOXAPINE HCL [Concomitant]
     Dosage: 25 MG, STAT
     Route: 030
     Dates: start: 20110829
  81. DEPAKENE [Concomitant]
     Dosage: 500 MG, BID
     Route: 048
     Dates: start: 20110727
  82. DESYREL [Concomitant]
     Dosage: 25 MG, TID
     Dates: start: 20110316
  83. DESYREL [Concomitant]
     Dosage: 50 MG, PRN
     Dates: start: 20110324
  84. VALPROATE SODIUM [Concomitant]

REACTIONS (2)
  - RENAL FAILURE [None]
  - NEUTROPENIA [None]
